FAERS Safety Report 8045804-1 (Version None)
Quarter: 2012Q1

REPORT INFORMATION
  Report Type: 
  Country: None (occurrence: None)
  Receive Date: 20120113
  Receipt Date: 20120109
  Transmission Date: 20120608
  Serious: Yes (Other)
  Sender: FDA-Public Use
  Company Number: CA-ROCHE-1029945

PATIENT
  Sex: Female

DRUGS (6)
  1. SINGULAIR [Concomitant]
  2. PREDNISONE [Concomitant]
  3. VENTOLIN [Concomitant]
  4. FLOVENT [Concomitant]
  5. XOLAIR [Suspect]
     Indication: ASTHMA
     Route: 058
     Dates: start: 20100609
  6. ADVAIR DISKUS 100/50 [Concomitant]

REACTIONS (8)
  - SNEEZING [None]
  - LOWER RESPIRATORY TRACT INFECTION [None]
  - HYPERSENSITIVITY [None]
  - NASOPHARYNGITIS [None]
  - LACRIMATION INCREASED [None]
  - GLUCOSE TOLERANCE IMPAIRED [None]
  - GASTROENTERITIS VIRAL [None]
  - BLOOD PRESSURE INCREASED [None]
